FAERS Safety Report 4382538-9 (Version None)
Quarter: 2004Q2

REPORT INFORMATION
  Report Type: 
  Country: None (occurrence: None)
  Receive Date: 20040617
  Receipt Date: 20040601
  Transmission Date: 20050107
  Serious: Yes (Hospitalization, Disabling)
  Sender: FDA-Public Use
  Company Number: F01200400008

PATIENT
  Age: 65 Year
  Sex: Male

DRUGS (6)
  1. (OXALIPLATIN) [Suspect]
     Indication: RECTAL CANCER
     Dosage: 247 MG Q3W INTRAVENOUS NOS
     Route: 042
     Dates: start: 20031208, end: 20031208
  2. (CAPECITABINE) [Suspect]
     Dosage: 1900 MG TWICE A DAY GIVEN ORALLY FOR 14 DAYS FOLLOWED BY 7 DAYS REST, Q3W
     Route: 048
     Dates: start: 20031208, end: 20031219
  3. LOSARTAN POTASSIUM [Concomitant]
  4. SIMVASTATIN [Concomitant]
  5. HYDROCHLOROTHIAZIDE [Concomitant]
  6. LOSEC (OMEPRAZOLE) [Concomitant]

REACTIONS (7)
  - DIARRHOEA [None]
  - ISCHAEMIC STROKE [None]
  - MYOCARDIAL INFARCTION [None]
  - NEUTROPENIA [None]
  - PULMONARY EMBOLISM [None]
  - SEPSIS [None]
  - THROMBOTIC STROKE [None]
